FAERS Safety Report 19711182 (Version 3)
Quarter: 2021Q3

REPORT INFORMATION
  Report Type: Report from Study
  Country: KR (occurrence: KR)
  Receive Date: 20210816
  Receipt Date: 20210922
  Transmission Date: 20211014
  Serious: Yes (Other)
  Sender: FDA-Public Use
  Company Number: KR-TAKEDA-2021TUS050176

PATIENT
  Sex: Male

DRUGS (34)
  1. BRIGATINIB [Suspect]
     Active Substance: BRIGATINIB
     Dosage: 180 MILLIGRAM, QD
     Route: 065
     Dates: start: 20210104, end: 20210711
  2. REXIPIN [Concomitant]
     Indication: COUGH
     Dosage: 800 MILLIGRAM
     Route: 048
     Dates: start: 20200526
  3. MUCOSTA [Concomitant]
     Active Substance: REBAMIPIDE
     Indication: GASTROINTESTINAL PAIN
     Dosage: 300 MILLIGRAM
     Route: 048
     Dates: start: 20200915
  4. DIABEX [Concomitant]
     Active Substance: METFORMIN HYDROCHLORIDE
     Indication: DIABETES MELLITUS
     Dosage: 1000 MILLIGRAM
     Route: 048
     Dates: start: 20210710
  5. Q PROFEN [Concomitant]
     Indication: CHEST PAIN
     Dosage: 1200 MILLIGRAM
     Route: 048
     Dates: start: 20210420
  6. GODEX [Concomitant]
     Indication: ASPARTATE AMINOTRANSFERASE INCREASED
     Dosage: UNK
     Route: 048
     Dates: start: 20210608
  7. TRAJENTA [Concomitant]
     Active Substance: LINAGLIPTIN
     Indication: DIABETES MELLITUS
     Dosage: 5 MILLIGRAM
     Route: 048
     Dates: start: 20210707
  8. CHLORPHENIRAMINE MALEATE. [Concomitant]
     Active Substance: CHLORPHENIRAMINE MALEATE
     Indication: NON-SMALL CELL LUNG CANCER
     Dosage: 4 MILLIGRAM
     Route: 042
     Dates: start: 20210719, end: 20210719
  9. Q ROKEL [Concomitant]
     Indication: DEPRESSION
     Dosage: 25 MILLIGRAM
     Route: 048
     Dates: start: 20201218, end: 20210106
  10. ALMAGEL A [Concomitant]
     Indication: CHRONIC GASTRITIS
     Dosage: 45 MILLILITER
     Route: 048
     Dates: start: 20210127, end: 20210202
  11. CODENING [Concomitant]
     Indication: COUGH
     Dosage: UNK
     Route: 048
     Dates: start: 20210217, end: 20210309
  12. KANARB [Concomitant]
     Indication: HYPERTENSION
     Dosage: 60 MILLIGRAM
     Route: 048
     Dates: start: 20200828
  13. GASMOTIN [Concomitant]
     Active Substance: MOSAPRIDE CITRATE
     Indication: GASTROOESOPHAGEAL REFLUX DISEASE
     Dosage: 15 MILLIGRAM
     Route: 048
     Dates: start: 20210127, end: 20210202
  14. GASMOTIN [Concomitant]
     Active Substance: MOSAPRIDE CITRATE
     Dosage: 15 MILLIGRAM
     Route: 048
     Dates: start: 20210217, end: 20210309
  15. SLIVAN [Concomitant]
     Indication: DEPRESSION
     Dosage: 2 MILLIGRAM
     Route: 048
     Dates: start: 20200529
  16. DEXAMETHASONE. [Concomitant]
     Active Substance: DEXAMETHASONE
     Indication: NON-SMALL CELL LUNG CANCER
     Dosage: 4 MILLIGRAM
     Route: 042
     Dates: start: 20210719, end: 20210719
  17. TAZIME [Concomitant]
     Active Substance: CEFTAZIDIME
     Indication: PNEUMONIA
     Dosage: 4 GRAM
     Route: 042
     Dates: start: 20210707, end: 20210707
  18. BEARCIN [Concomitant]
     Dosage: 1000 MILLIGRAM
     Route: 048
     Dates: start: 20210622
  19. GEMTAN [Concomitant]
     Active Substance: GEMCITABINE HYDROCHLORIDE
     Indication: NON-SMALL CELL LUNG CANCER
     Dosage: 2275 MILLIGRAM
     Route: 042
     Dates: start: 20210719, end: 20210719
  20. CARBOPLATIN. [Concomitant]
     Active Substance: CARBOPLATIN
     Indication: NON-SMALL CELL LUNG CANCER
     Dosage: 596.5 MILLIGRAM
     Route: 042
     Dates: start: 20210719, end: 20210719
  21. MEPTIN [Concomitant]
     Active Substance: PROCATEROL HYDROCHLORIDE
     Indication: COUGH
     Dosage: 75 MICROGRAM
     Route: 048
     Dates: start: 20200530, end: 20210322
  22. MYUNGIN TRAZODONE [Concomitant]
     Indication: DEPRESSION
     Dosage: 50 MILLIGRAM
     Route: 048
     Dates: start: 20200529, end: 20210106
  23. CEFTRIAXONE BORYUNG [Concomitant]
     Indication: RESPIRATORY TRACT INFECTION
     Dosage: 2 GRAM
     Route: 042
     Dates: start: 20201218, end: 20210106
  24. BRIGATINIB [Suspect]
     Active Substance: BRIGATINIB
     Indication: NON-SMALL CELL LUNG CANCER
     Dosage: 90 MILLIGRAM, QD
     Route: 065
     Dates: start: 20201228, end: 20210103
  25. NEXIUM [Concomitant]
     Active Substance: ESOMEPRAZOLE MAGNESIUM
     Indication: GASTROOESOPHAGEAL REFLUX DISEASE
     Dosage: 20 MILLIGRAM
     Route: 048
     Dates: start: 20210127, end: 20210202
  26. CYMBALTA [Concomitant]
     Active Substance: DULOXETINE HYDROCHLORIDE
     Indication: DEPRESSION
     Dosage: 120 MILLIGRAM
     Route: 048
     Dates: start: 20200529
  27. BEARSE [Concomitant]
     Active Substance: DIMETHICONE\PANCRELIPASE\URSODIOL
     Indication: GASTROINTESTINAL PAIN
     Dosage: UNK
     Route: 048
     Dates: start: 20210711, end: 20210711
  28. LIPILOU [Concomitant]
     Indication: HYPERLIPIDAEMIA
     Dosage: 20 MILLIGRAM
     Route: 048
     Dates: start: 20200529, end: 20210106
  29. ALMAGEL A [Concomitant]
     Dosage: 45 MILLILITER
     Route: 048
     Dates: start: 20210217, end: 20210309
  30. DIAMICRON MR [Concomitant]
     Active Substance: GLICLAZIDE
     Indication: DIABETES MELLITUS
     Dosage: 60 MILLIGRAM
     Route: 048
     Dates: start: 20210707, end: 20210709
  31. POTASSIUM CHLORIDE. [Concomitant]
     Active Substance: POTASSIUM CHLORIDE
     Indication: NON-SMALL CELL LUNG CANCER
     Dosage: UNK
     Route: 042
     Dates: start: 20210719, end: 20210719
  32. CEFTIN [Concomitant]
     Active Substance: CEFUROXIME AXETIL
     Indication: PNEUMONIA
     Dosage: 200 MILLIGRAM
     Route: 048
     Dates: start: 20210622
  33. DICHLOZID [Concomitant]
     Indication: HYPERTENSION
     Dosage: 12.5 MILLIGRAM
     Route: 048
     Dates: start: 20200812, end: 20210106
  34. NEXIUM [Concomitant]
     Active Substance: ESOMEPRAZOLE MAGNESIUM
     Dosage: 20 MILLIGRAM
     Route: 048
     Dates: start: 20210217, end: 20210309

REACTIONS (1)
  - Diabetes mellitus [Not Recovered/Not Resolved]

NARRATIVE: CASE EVENT DATE: 20210723
